FAERS Safety Report 17325834 (Version 1)
Quarter: 2020Q1

REPORT INFORMATION
  Report Type: Report from Study
  Country: CA (occurrence: CA)
  Receive Date: 20200127
  Receipt Date: 20200127
  Transmission Date: 20200409
  Serious: Yes (Other)
  Sender: FDA-Public Use
  Company Number: CA-ROCHE-2253163

PATIENT
  Age: 45 Year
  Sex: Female
  Weight: 50 kg

DRUGS (4)
  1. OCREVUS [Suspect]
     Active Substance: OCRELIZUMAB
     Indication: RELAPSING-REMITTING MULTIPLE SCLEROSIS
     Dosage: NEXT SUBSEQUENT DOSE: 06/FEB/2019
     Route: 042
     Dates: start: 20190121
  2. VALTREX [Concomitant]
     Active Substance: VALACYCLOVIR HYDROCHLORIDE
     Dosage: ONGOING YES
     Route: 065
     Dates: start: 2019
  3. OCREVUS [Suspect]
     Active Substance: OCRELIZUMAB
     Dosage: 2 INITIAL DOSES OVER 2 WEEKS
     Route: 042
     Dates: start: 20190621
  4. OXAZEPAM. [Concomitant]
     Active Substance: OXAZEPAM
     Indication: ANXIETY
     Dosage: ONGOING YES
     Route: 065

REACTIONS (22)
  - Urinary tract infection [Recovered/Resolved]
  - Motor dysfunction [Not Recovered/Not Resolved]
  - Feeling abnormal [Unknown]
  - Wrist fracture [Unknown]
  - Infusion related reaction [Recovered/Resolved]
  - Fatigue [Unknown]
  - Asthenia [Not Recovered/Not Resolved]
  - Pain in extremity [Unknown]
  - Anxiety [Not Recovered/Not Resolved]
  - Asthenia [Unknown]
  - Mass [Recovered/Resolved]
  - Mass [Recovering/Resolving]
  - Diarrhoea [Unknown]
  - Fall [Unknown]
  - Dizziness [Unknown]
  - Muscular weakness [Not Recovered/Not Resolved]
  - Wrist fracture [Recovered/Resolved]
  - Apathy [Recovered/Resolved]
  - Fatigue [Not Recovered/Not Resolved]
  - Muscle spasms [Recovered/Resolved]
  - Hypersomnia [Unknown]
  - Urinary tract infection [Unknown]

NARRATIVE: CASE EVENT DATE: 20190121
